FAERS Safety Report 7385139-3 (Version None)
Quarter: 2011Q1

REPORT INFORMATION
  Report Type: 
  Country: None (occurrence: None)
  Receive Date: 20110330
  Receipt Date: 20110324
  Transmission Date: 20110831
  Serious: Yes (Death, Hospitalization)
  Sender: FDA-Public Use
  Company Number: DE-BRISTOL-MYERS SQUIBB COMPANY-15235468

PATIENT
  Age: 68 Year
  Sex: Male
  Weight: 70 kg

DRUGS (6)
  1. PACLITAXEL [Suspect]
     Indication: NON-SMALL CELL LUNG CANCER
     Dosage: 6MG/ML
     Route: 042
     Dates: start: 20100507, end: 20100625
  2. SIOFOR [Concomitant]
     Indication: HYPERTENSION
     Route: 048
  3. OMEPRAZOLE [Concomitant]
     Indication: GASTRITIS PROPHYLAXIS
     Route: 048
     Dates: start: 20100101
  4. ENALAPRIL [Concomitant]
     Indication: HYPERTENSION
     Route: 048
  5. CISPLATIN [Suspect]
     Indication: NON-SMALL CELL LUNG CANCER
     Dosage: 75MG ALSO 95MG
     Route: 042
     Dates: start: 20100507, end: 20100727
  6. VINORELBINE [Suspect]
     Indication: NON-SMALL CELL LUNG CANCER
     Route: 042
     Dates: start: 20100720, end: 20100727

REACTIONS (9)
  - HYPOXIA [None]
  - COAGULOPATHY [None]
  - SEPSIS [None]
  - LEUKOPENIA [None]
  - SEPTIC SHOCK [None]
  - CARDIAC FAILURE [None]
  - PNEUMONIA [None]
  - VENTRICULAR TACHYCARDIA [None]
  - RENAL IMPAIRMENT [None]
